FAERS Safety Report 13070528 (Version 2)
Quarter: 2017Q1

REPORT INFORMATION
  Report Type: Report from Study
  Country: None (occurrence: US)
  Receive Date: 20161229
  Receipt Date: 20170209
  Transmission Date: 20170428
  Serious: Yes (Other)
  Sender: FDA-Public Use
  Company Number: US-ABBVIE-16K-163-1814636-00

PATIENT
  Age: 45 Year
  Sex: Female

DRUGS (4)
  1. PLAQUENIL [Concomitant]
     Active Substance: HYDROXYCHLOROQUINE SULFATE
     Indication: PRODUCT USED FOR UNKNOWN INDICATION
  2. CALTRATE [Concomitant]
     Active Substance: CALCIUM CARBONATE
     Indication: PRODUCT USED FOR UNKNOWN INDICATION
  3. FOLIC ACID. [Concomitant]
     Active Substance: FOLIC ACID
     Indication: PRODUCT USED FOR UNKNOWN INDICATION
  4. HUMIRA [Suspect]
     Active Substance: ADALIMUMAB
     Indication: COLITIS ULCERATIVE
     Route: 058
     Dates: start: 201609

REACTIONS (12)
  - Haematochezia [Not Recovered/Not Resolved]
  - Blood magnesium decreased [Recovering/Resolving]
  - Prothrombin time prolonged [Recovered/Resolved]
  - Pain in extremity [Recovering/Resolving]
  - Weight decreased [Recovering/Resolving]
  - Gastrointestinal ulcer [Recovering/Resolving]
  - Thrombosis [Not Recovered/Not Resolved]
  - Abdominal abscess [Recovering/Resolving]
  - Injection site pain [Recovered/Resolved]
  - Oesophageal ulcer haemorrhage [Recovering/Resolving]
  - Anaemia [Not Recovered/Not Resolved]
  - Abasia [Recovered/Resolved]

NARRATIVE: CASE EVENT DATE: 201609
